FAERS Safety Report 15963801 (Version 1)
Quarter: 2019Q1

REPORT INFORMATION
  Report Type: Spontaneous
  Country: IT (occurrence: IT)
  Receive Date: 20190214
  Receipt Date: 20190214
  Transmission Date: 20190417
  Serious: Yes (Other)
  Sender: FDA-Public Use
  Company Number: IT-MYLANLABS-2019M1013130

PATIENT
  Age: 2 Month
  Sex: Female

DRUGS (3)
  1. METRONIDAZOLE. [Interacting]
     Active Substance: METRONIDAZOLE
     Indication: DIVERTICULITIS
     Dosage: 750 MILLIGRAM, PRN, (INTERACTING DRUGS)
     Route: 048
     Dates: start: 20180717
  2. CIPROFLOXACIN. [Suspect]
     Active Substance: CIPROFLOXACIN
     Indication: DIVERTICULITIS
     Dosage: 100 MILLIGRAM, PRN, (INTERACTING DRUGS)
     Route: 048
     Dates: start: 20180717
  3. COUMADIN [Concomitant]
     Active Substance: WARFARIN SODIUM
     Dosage: 20 MILLIGRAM
     Route: 048

REACTIONS (2)
  - Prothrombin level increased [Recovered/Resolved]
  - Drug interaction [Unknown]

NARRATIVE: CASE EVENT DATE: 20180724
